FAERS Safety Report 7507891-6 (Version None)
Quarter: 2011Q2

REPORT INFORMATION
  Report Type: 
  Country: None (occurrence: None)
  Receive Date: 20110527
  Receipt Date: 20110518
  Transmission Date: 20111010
  Serious: No
  Sender: FDA-Public Use
  Company Number: US-BIOGENIDEC-2011BI019123

PATIENT
  Age: 48 Year
  Sex: Female

DRUGS (2)
  1. NEW MEDICATION (NOS) [Concomitant]
     Indication: PRODUCT USED FOR UNKNOWN INDICATION
  2. AVONEX [Suspect]
     Indication: MULTIPLE SCLEROSIS
     Route: 030
     Dates: start: 20110427

REACTIONS (2)
  - DERMATITIS ALLERGIC [None]
  - HYPERSENSITIVITY [None]
